FAERS Safety Report 8413458-8 (Version None)
Quarter: 2012Q2

REPORT INFORMATION
  Report Type: 
  Country: None (occurrence: None)
  Receive Date: 20120605
  Receipt Date: 20120530
  Transmission Date: 20120825
  Serious: Yes (Other)
  Sender: FDA-Public Use
  Company Number: IT-ROCHE-1069575

PATIENT
  Age: 43 Year
  Sex: Male
  Weight: 80 kg

DRUGS (2)
  1. VEMURAFENIB [Suspect]
     Route: 048
     Dates: start: 20120322
  2. VEMURAFENIB [Suspect]
     Indication: METASTATIC MALIGNANT MELANOMA
     Route: 048
     Dates: start: 20120126, end: 20120305

REACTIONS (2)
  - MALIGNANT MELANOMA [None]
  - NEOPLASM PROGRESSION [None]
